FAERS Safety Report 5277535-5 (Version None)
Quarter: 2007Q1

REPORT INFORMATION
  Report Type: 
  Country: None (occurrence: None)
  Receive Date: 20070327
  Receipt Date: 20070315
  Transmission Date: 20070707
  Serious: Yes (Other)
  Sender: FDA-Public Use
  Company Number: JP-ROCHE-488638

PATIENT
  Age: 17 Year
  Sex: Male

DRUGS (3)
  1. TAMIFLU [Suspect]
     Route: 048
     Dates: start: 20070314, end: 20070314
  2. ANYRUME [Suspect]
     Indication: DRUG USE FOR UNKNOWN INDICATION
     Route: 065
  3. 1 OTHER SUSPECTED DRUG [Suspect]
     Indication: DRUG USE FOR UNKNOWN INDICATION
     Dosage: DRUG WAS REPORTED AS MIZERON.
     Route: 048

REACTIONS (3)
  - CONVULSION [None]
  - LOSS OF CONSCIOUSNESS [None]
  - VOMITING [None]
